FAERS Safety Report 25905423 (Version 2)
Quarter: 2025Q4

REPORT INFORMATION
  Report Type: Spontaneous
  Country: JP (occurrence: JP)
  Receive Date: 20251010
  Receipt Date: 20251114
  Transmission Date: 20260117
  Serious: Yes (Other)
  Sender: MERCK SHARP & DOHME LLC
  Company Number: JP-009507513-2337079

PATIENT
  Age: 69 Year
  Sex: Female

DRUGS (3)
  1. KEYTRUDA [Suspect]
     Active Substance: PEMBROLIZUMAB
     Indication: Gallbladder cancer stage IV
     Route: 041
     Dates: start: 20250825
  2. GEMCITABINE [Concomitant]
     Active Substance: GEMCITABINE
     Indication: Gallbladder squamous cell carcinoma
     Route: 041
     Dates: start: 20250825
  3. CISPLATIN [Concomitant]
     Active Substance: CISPLATIN
     Indication: Gallbladder squamous cell carcinoma
     Route: 041
     Dates: start: 20250825

REACTIONS (3)
  - Cholangitis [Recovered/Resolved]
  - Hypothyroidism [Recovering/Resolving]
  - Therapy partial responder [Unknown]

NARRATIVE: CASE EVENT DATE: 20250101
